FAERS Safety Report 7409828-7 (Version None)
Quarter: 2011Q2

REPORT INFORMATION
  Report Type: 
  Country: None (occurrence: None)
  Receive Date: 20110412
  Receipt Date: 20110216
  Transmission Date: 20111010
  Serious: Yes (Hospitalization, Other)
  Sender: FDA-Public Use
  Company Number: US-BAYER-201040006NA

PATIENT
  Age: 29 Year
  Sex: Female
  Weight: 58 kg

DRUGS (8)
  1. ALBUTEROL [Concomitant]
  2. VICODIN [Concomitant]
  3. LORATADINE [Concomitant]
  4. YAZ [Suspect]
     Indication: ACNE
     Dosage: UNK UNK, QD
     Route: 048
     Dates: start: 20080430, end: 20081105
  5. YAZ [Suspect]
     Indication: PREMENSTRUAL SYNDROME
  6. ADVAIR DISKUS 100/50 [Concomitant]
  7. NSAID'S [Concomitant]
     Dosage: UNK
     Dates: start: 20080101, end: 20080101
  8. TORADOL [Concomitant]

REACTIONS (5)
  - MENORRHAGIA [None]
  - PELVIC VENOUS THROMBOSIS [None]
  - ABDOMINAL PAIN LOWER [None]
  - NAUSEA [None]
  - LOSS OF CONSCIOUSNESS [None]
